FAERS Safety Report 12521867 (Version 2)
Quarter: 2016Q3

REPORT INFORMATION
  Report Type: Report from Study
  Country: US (occurrence: US)
  Receive Date: 20160701
  Receipt Date: 20160912
  Transmission Date: 20161109
  Serious: Yes (Death, Hospitalization, Other)
  Sender: FDA-Public Use
  Company Number: US-AMGEN-USASL2016085246

PATIENT
  Age: 75 Year
  Sex: Male

DRUGS (1)
  1. REPATHA [Suspect]
     Active Substance: EVOLOCUMAB
     Indication: PRODUCT USED FOR UNKNOWN INDICATION
     Dosage: 140 MG, Q2WK
     Route: 065
     Dates: start: 20160208

REACTIONS (6)
  - Pancreatitis [Unknown]
  - Myocardial infarction [Unknown]
  - Staphylococcal infection [Unknown]
  - Pulmonary oedema [Unknown]
  - Death [Fatal]
  - Aneurysm repair [Unknown]

NARRATIVE: CASE EVENT DATE: 20160627
